FAERS Safety Report 6274728-5 (Version None)
Quarter: 2009Q3

REPORT INFORMATION
  Report Type: 
  Country: None (occurrence: None)
  Receive Date: 20090721
  Receipt Date: 20070511
  Transmission Date: 20100115
  Serious: Yes (Hospitalization, Disabling, Other)
  Sender: FDA-Public Use
  Company Number: US-ASTRAZENECA-2006UW22174

PATIENT
  Age: 34 Year
  Sex: Male
  Weight: 111.1 kg

DRUGS (8)
  1. SEROQUEL [Suspect]
     Indication: BIPOLAR DISORDER
     Route: 048
     Dates: start: 19970101
  2. SEROQUEL [Suspect]
     Indication: HALLUCINATION, AUDITORY
     Route: 048
     Dates: start: 19970101
  3. SEROQUEL [Suspect]
     Dosage: 100-400MG
     Route: 048
     Dates: start: 20021005
  4. SEROQUEL [Suspect]
     Dosage: 100-400MG
     Route: 048
     Dates: start: 20021005
  5. UNSPECIFIED PSYCHIATRIC MEDICATION [Concomitant]
  6. TRAZODONE [Concomitant]
     Route: 048
     Dates: start: 20021128
  7. LITHIUM [Concomitant]
     Dosage: 300-600 QAM AND 600-900 HS
     Route: 048
     Dates: start: 20011002
  8. ZOLOFT [Concomitant]
     Dosage: 100-200 MG
     Route: 048
     Dates: start: 20011002

REACTIONS (6)
  - COMA [None]
  - DIABETES MELLITUS [None]
  - DIABETIC COMA [None]
  - DIABETIC NEUROPATHY [None]
  - KETOACIDOSIS [None]
  - TYPE 2 DIABETES MELLITUS [None]
